FAERS Safety Report 17710471 (Version 1)
Quarter: 2020Q2

REPORT INFORMATION
  Report Type: Spontaneous
  Country: US (occurrence: US)
  Receive Date: 20200427
  Receipt Date: 20200427
  Transmission Date: 20200714
  Serious: No
  Sender: FDA-Public Use
  Company Number: US-MYLANLABS-2020M1040540

PATIENT
  Sex: Female

DRUGS (1)
  1. ESTRADIOL TRANSDERMAL SYSTEM [Suspect]
     Active Substance: ESTRADIOL
     Indication: PRODUCT USED FOR UNKNOWN INDICATION
     Dosage: 0.1 MILLIGRAM, BIWEEKLY, CHANGE TWICE A WEEK
     Route: 062

REACTIONS (3)
  - Application site erythema [Recovered/Resolved]
  - Wrong technique in product usage process [Not Recovered/Not Resolved]
  - Product residue present [Not Recovered/Not Resolved]
